FAERS Safety Report 6418269-0 (Version None)
Quarter: 2009Q4

REPORT INFORMATION
  Report Type: 
  Country: None (occurrence: None)
  Receive Date: 20091021
  Receipt Date: 20090613
  Transmission Date: 20100525
  Serious: No
  Sender: FDA-Public Use
  Company Number: ALL1-2009-01624

PATIENT
  Age: 20 Year
  Sex: Female
  Weight: 53.5 kg

DRUGS (1)
  1. VYVANSE [Suspect]
     Indication: ATTENTION DEFICIT/HYPERACTIVITY DISORDER
     Dosage: 50 MG, 2X/DAY:BID, ORAL
     Route: 048
     Dates: start: 20090613

REACTIONS (6)
  - FEELING ABNORMAL [None]
  - FEELING DRUNK [None]
  - FEELING OF RELAXATION [None]
  - INAPPROPRIATE SCHEDULE OF DRUG ADMINISTRATION [None]
  - OVERDOSE [None]
  - SENSATION OF HEAVINESS [None]
